FAERS Safety Report 9098665 (Version 1)
Quarter: 2013Q1

REPORT INFORMATION
  Report Type: Spontaneous
  Country: US (occurrence: US)
  Receive Date: 20130213
  Receipt Date: 20130213
  Transmission Date: 20140127
  Serious: No
  Sender: FDA-Public Use
  Company Number: US-ALLERGAN-1212601US

PATIENT
  Age: 52 Year
  Sex: Female

DRUGS (2)
  1. LASTACAFT [Suspect]
     Indication: HYPERSENSITIVITY
     Dosage: UNK UNK, QD
     Route: 047
     Dates: start: 20120509, end: 201208
  2. ALREX [Concomitant]
     Indication: GIANT PAPILLARY CONJUNCTIVITIS
     Dosage: UNK UNK, BID
     Route: 061
     Dates: start: 201203

REACTIONS (2)
  - Conjunctivitis [Recovered/Resolved]
  - Hypersensitivity [Unknown]
